FAERS Safety Report 25532584 (Version 3)
Quarter: 2025Q3

REPORT INFORMATION
  Report Type: Spontaneous
  Country: US (occurrence: US)
  Receive Date: 20250709
  Receipt Date: 20250922
  Transmission Date: 20251020
  Serious: No
  Sender: LUPIN
  Company Number: US-LUPIN PHARMACEUTICALS INC.-2025-05716

PATIENT
  Age: 65 Year
  Weight: 49.887 kg

DRUGS (1)
  1. ALBUTEROL SULFATE [Suspect]
     Active Substance: ALBUTEROL SULFATE
     Indication: Asthma
     Dosage: 4 TO 5 PUFFS A DAY, QD

REACTIONS (5)
  - Asthma [Unknown]
  - Device use error [Unknown]
  - Drug dose omission by device [Unknown]
  - Product storage error [Unknown]
  - Wrong technique in product usage process [Unknown]
